FAERS Safety Report 14800266 (Version 2)
Quarter: 2018Q2

REPORT INFORMATION
  Report Type: Spontaneous
  Country: SI (occurrence: SI)
  Receive Date: 20180424
  Receipt Date: 20180529
  Transmission Date: 20180711
  Serious: Yes (Other)
  Sender: FDA-Public Use
  Company Number: SI-BAYER-2018-073186

PATIENT
  Sex: Female

DRUGS (1)
  1. MIRENA [Suspect]
     Active Substance: LEVONORGESTREL
     Indication: CONTRACEPTION
     Dosage: 20 MCG/24HR, CONT
     Route: 015
     Dates: start: 201311, end: 20180312

REACTIONS (8)
  - Vaginal discharge [None]
  - Anxiety [None]
  - Palpitations [None]
  - Insomnia [None]
  - Fibroadenoma of breast [None]
  - Panic attack [None]
  - Sinus tachycardia [None]
  - Breast cyst [None]
